FAERS Safety Report 19676576 (Version 1)
Quarter: 2021Q3

REPORT INFORMATION
  Report Type: Spontaneous
  Country: US (occurrence: US)
  Receive Date: 20210810
  Receipt Date: 20210810
  Transmission Date: 20211014
  Serious: Yes (Other)
  Sender: FDA-Public Use
  Company Number: US-JNJFOC-20210765553

PATIENT
  Sex: Female

DRUGS (5)
  1. INVEGA SUSTENNA [Suspect]
     Active Substance: PALIPERIDONE PALMITATE
     Indication: PRODUCT USED FOR UNKNOWN INDICATION
     Route: 030
  2. INVEGA SUSTENNA [Suspect]
     Active Substance: PALIPERIDONE PALMITATE
  3. INVEGA SUSTENNA [Suspect]
     Active Substance: PALIPERIDONE PALMITATE
  4. PALIPERIDONE. [Suspect]
     Active Substance: PALIPERIDONE
     Indication: PRODUCT USED FOR UNKNOWN INDICATION
     Route: 048
  5. BENZTROPINE [BENZATROPINE] [Concomitant]
     Active Substance: BENZTROPINE

REACTIONS (8)
  - Amenorrhoea [Unknown]
  - Paralysis [Unknown]
  - Blister [Unknown]
  - Pain [Unknown]
  - Pruritus [Unknown]
  - Bone development abnormal [Unknown]
  - Persecutory delusion [Unknown]
  - Peripheral swelling [Unknown]
